FAERS Safety Report 14841929 (Version 4)
Quarter: 2018Q4

REPORT INFORMATION
  Report Type: Spontaneous
  Country: US (occurrence: US)
  Receive Date: 20180503
  Receipt Date: 20181005
  Transmission Date: 20190204
  Serious: Yes (Other)
  Sender: FDA-Public Use
  Company Number: US-PFIZER INC-2018181105

PATIENT
  Age: 70 Year
  Sex: Male
  Weight: 65 kg

DRUGS (4)
  1. SUTENT [Suspect]
     Active Substance: SUNITINIB MALATE
     Dosage: 50 MG, CYCLIC (DAYS 1-28 Q42 DAYS)
     Route: 048
     Dates: start: 2018
  2. SUTENT [Suspect]
     Active Substance: SUNITINIB MALATE
     Dosage: 50 MG, CYCLIC(DAILY X 4 WEEKS THEN 2 WEEKS OFF)
     Route: 048
     Dates: start: 20180421
  3. SUTENT [Suspect]
     Active Substance: SUNITINIB MALATE
     Indication: RENAL CELL CARCINOMA
     Dosage: 37.5 MG, CYCLIC (DAILY EVERY 28 DAYS)
     Route: 048
     Dates: start: 20180421, end: 2018
  4. SUTENT [Suspect]
     Active Substance: SUNITINIB MALATE
     Dosage: 50 MG, CYCLIC (ONCE DAILY FOR 4 WEEKS/FOR 4 WEEKS ON, THEN 2 WEEKS OFF)
     Route: 048
     Dates: start: 20180821, end: 20180926

REACTIONS (9)
  - Gastric disorder [Unknown]
  - Neoplasm progression [Unknown]
  - Increased tendency to bruise [Unknown]
  - Muscle twitching [Unknown]
  - Musculoskeletal chest pain [Unknown]
  - Feeling hot [Unknown]
  - Abdominal discomfort [Recovered/Resolved]
  - Gastrointestinal haemorrhage [Unknown]
  - Platelet count decreased [Unknown]

NARRATIVE: CASE EVENT DATE: 2018
